FAERS Safety Report 7621511-1 (Version None)
Quarter: 2011Q3

REPORT INFORMATION
  Report Type: 
  Country: None (occurrence: None)
  Receive Date: 20110719
  Receipt Date: 20110714
  Transmission Date: 20111222
  Serious: Yes (Other)
  Sender: FDA-Public Use
  Company Number: US-PFIZER INC-2011134318

PATIENT
  Sex: Male
  Weight: 72.562 kg

DRUGS (15)
  1. LYRICA [Suspect]
     Indication: NERVOUS SYSTEM DISORDER
     Dosage: 200 MG, 1X/DAY
     Route: 048
     Dates: start: 20110101
  2. LASIX [Concomitant]
     Indication: DIURETIC THERAPY
     Dosage: 20 MG, 2X/DAY
     Route: 048
  3. SPIRIVA [Concomitant]
     Indication: LUNG DISORDER
     Dosage: UNK
     Route: 045
  4. LYRICA [Suspect]
     Indication: BACK PAIN
     Dosage: 150 MG, 1X/DAY
     Route: 048
     Dates: start: 20110101, end: 20110101
  5. PROVENTIL GENTLEHALER [Concomitant]
     Indication: ASTHMA
     Dosage: UNK
     Route: 045
  6. LYRICA [Suspect]
     Indication: PAIN
     Dosage: 150 MG, 2X/DAY
     Route: 048
     Dates: start: 20110101, end: 20110101
  7. LYRICA [Suspect]
     Dosage: 200 MG, 2X/DAY
     Route: 048
     Dates: start: 20110101
  8. PRILOSEC [Concomitant]
     Indication: GASTROOESOPHAGEAL REFLUX DISEASE
     Dosage: UNK
     Route: 048
  9. HYTRIN [Concomitant]
     Indication: DIURETIC THERAPY
     Dosage: 4 MG, 1X/DAY
     Route: 048
  10. PREDNISONE [Concomitant]
     Indication: OEDEMA PERIPHERAL
     Dosage: 5 MG, 1X/DAY
  11. OXYCODONE [Concomitant]
     Indication: PAIN
     Dosage: UNK, AS NEEDED
  12. SIMVASTATIN [Concomitant]
     Indication: BLOOD CHOLESTEROL ABNORMAL
     Dosage: UNK
  13. XANAX [Concomitant]
     Indication: SLEEP DISORDER
     Dosage: 0.5 MG, UNK
     Route: 048
  14. ATENOLOL [Concomitant]
     Indication: BLOOD PRESSURE ABNORMAL
     Dosage: 25 MG, 1X/DAY
  15. LYRICA [Suspect]
     Dosage: 400 MG, 2X/DAY

REACTIONS (3)
  - ABASIA [None]
  - TREMOR [None]
  - FALL [None]
